FAERS Safety Report 13535211 (Version 2)
Quarter: 2017Q2

REPORT INFORMATION
  Report Type: Spontaneous
  Country: US (occurrence: US)
  Receive Date: 20170511
  Receipt Date: 20170525
  Transmission Date: 20170830
  Serious: Yes (Death)
  Sender: FDA-Public Use
  Company Number: PHEH2017US013634

PATIENT
  Sex: Female

DRUGS (1)
  1. KISQALI [Suspect]
     Active Substance: RIBOCICLIB
     Indication: BREAST CANCER
     Dosage: 600 MG, QD
     Route: 048
     Dates: start: 20170405

REACTIONS (5)
  - Blood test abnormal [Unknown]
  - Myocardial infarction [Fatal]
  - Urinary tract infection [Unknown]
  - Musculoskeletal chest pain [Unknown]
  - Back pain [Unknown]
